FAERS Safety Report 13869655 (Version 1)
Quarter: 2017Q3

REPORT INFORMATION
  Report Type: Spontaneous
  Country: TW (occurrence: TW)
  Receive Date: 20170815
  Receipt Date: 20170815
  Transmission Date: 20171127
  Serious: Yes (Death)
  Sender: FDA-Public Use
  Company Number: PHHY2017TW118741

PATIENT
  Age: 55 Year
  Sex: Female

DRUGS (16)
  1. PALBOCICLIB [Suspect]
     Active Substance: PALBOCICLIB
     Indication: MUCINOUS BREAST CARCINOMA
     Dosage: 125 MG, QD (21/7 STRATEGY)
     Route: 065
     Dates: start: 20161004
  2. PALBOCICLIB [Suspect]
     Active Substance: PALBOCICLIB
     Dosage: 125 MG (QW1,3,5)
     Route: 065
  3. XELODA [Concomitant]
     Active Substance: CAPECITABINE
     Indication: MUCINOUS BREAST CARCINOMA
     Dosage: UNK
     Route: 065
     Dates: start: 20110131
  4. AVASTIN [Concomitant]
     Active Substance: BEVACIZUMAB
     Indication: MUCINOUS BREAST CARCINOMA
     Dosage: UNK
     Route: 065
  5. AROMASIN [Concomitant]
     Active Substance: EXEMESTANE
     Dosage: UNK
     Route: 065
     Dates: start: 20161004
  6. FEMARA [Suspect]
     Active Substance: LETROZOLE
     Dosage: UNK
     Route: 005
     Dates: start: 20140102
  7. NAVELBINE [Concomitant]
     Active Substance: VINORELBINE TARTRATE
     Dosage: UNK
     Route: 065
     Dates: start: 20111201
  8. ERIBULIN [Concomitant]
     Active Substance: ERIBULIN
     Indication: MUCINOUS BREAST CARCINOMA
     Dosage: UNK
     Route: 065
     Dates: start: 20150119
  9. FEMARA [Suspect]
     Active Substance: LETROZOLE
     Indication: MUCINOUS BREAST CARCINOMA
     Dosage: UNK
     Route: 065
     Dates: start: 20101104
  10. AVASTIN [Concomitant]
     Active Substance: BEVACIZUMAB
     Dosage: UNK
     Route: 065
     Dates: start: 20150119
  11. MEGEST [Concomitant]
     Indication: MUCINOUS BREAST CARCINOMA
     Dosage: UNK
     Route: 065
     Dates: start: 20161205
  12. AFINITOR [Suspect]
     Active Substance: EVEROLIMUS
     Indication: MUCINOUS BREAST CARCINOMA
     Dosage: UNK
     Route: 065
     Dates: start: 20141002
  13. NAVELBINE [Concomitant]
     Active Substance: VINORELBINE TARTRATE
     Indication: MUCINOUS BREAST CARCINOMA
     Dosage: UNK
     Route: 065
     Dates: start: 20110131
  14. PALBOCICLIB [Suspect]
     Active Substance: PALBOCICLIB
     Dosage: UNK
     Route: 065
     Dates: start: 20161205
  15. UFUR [Concomitant]
     Indication: MUCINOUS BREAST CARCINOMA
     Dosage: UNK
     Route: 065
     Dates: start: 20111201
  16. AROMASIN [Concomitant]
     Active Substance: EXEMESTANE
     Indication: MUCINOUS BREAST CARCINOMA
     Dosage: UNK
     Route: 065
     Dates: start: 20141002

REACTIONS (11)
  - Abdominal distension [Fatal]
  - Therapeutic response decreased [Fatal]
  - Asthenia [Fatal]
  - Blood urea increased [Unknown]
  - Pancytopenia [Fatal]
  - Metastases to central nervous system [Fatal]
  - Ascites [Fatal]
  - Carcinoembryonic antigen increased [Fatal]
  - Dizziness [Fatal]
  - Headache [Fatal]
  - Neutropenia [Fatal]

NARRATIVE: CASE EVENT DATE: 201507
